FAERS Safety Report 19998277 (Version 1)
Quarter: 2021Q4

REPORT INFORMATION
  Report Type: Spontaneous
  Country: CN (occurrence: CN)
  Receive Date: 20211026
  Receipt Date: 20211026
  Transmission Date: 20220303
  Serious: Yes (Other)
  Sender: FDA-Public Use
  Company Number: CN-PFIZER INC-202101368746

PATIENT
  Age: 29 Year
  Sex: Female
  Weight: 50.5 kg

DRUGS (1)
  1. AZITHROMYCIN ANHYDROUS [Suspect]
     Active Substance: AZITHROMYCIN ANHYDROUS
     Indication: Bronchitis
     Dosage: 0.5 G, 1X/DAY
     Route: 041
     Dates: start: 20210928, end: 20210928

REACTIONS (4)
  - Rash [Recovering/Resolving]
  - Infusion site pain [Recovering/Resolving]
  - Erythema [Recovering/Resolving]
  - Peripheral swelling [Recovering/Resolving]

NARRATIVE: CASE EVENT DATE: 20210928
